FAERS Safety Report 4277741-2 (Version None)
Quarter: 2004Q1

REPORT INFORMATION
  Report Type: 
  Country: None (occurrence: None)
  Receive Date: 20040123
  Receipt Date: 20040120
  Transmission Date: 20041129
  Serious: Yes (Other)
  Sender: FDA-Public Use
  Company Number: FR-BRISTOL-MYERS SQUIBB COMPANY-12482071

PATIENT
  Age: 55 Year
  Sex: Female

DRUGS (3)
  1. APROVEL TABS 150 MG [Suspect]
     Route: 048
     Dates: start: 20031120, end: 20040105
  2. ESTREVA [Concomitant]
  3. SURGESTONE [Concomitant]

REACTIONS (3)
  - ANGIONEUROTIC OEDEMA [None]
  - PARAESTHESIA [None]
  - TELANGIECTASIA [None]
